FAERS Safety Report 8237345-3 (Version None)
Quarter: 2012Q1

REPORT INFORMATION
  Report Type: 
  Country: None (occurrence: None)
  Receive Date: 20120327
  Receipt Date: 20120227
  Transmission Date: 20120608
  Serious: Yes (Life-Threatening)
  Sender: FDA-Public Use
  Company Number: US-ASTRAZENECA-2012SE19695

PATIENT

DRUGS (1)
  1. MEROPENEM [Suspect]
     Indication: ABDOMINAL INFECTION
     Dosage: THE DOSE RANGE FROM 10 TO 40 MG/KG.
     Route: 042

REACTIONS (2)
  - ILEAL PERFORATION [None]
  - CONVULSION [None]
